FAERS Safety Report 5336893-3 (Version None)
Quarter: 2007Q2

REPORT INFORMATION
  Report Type: 
  Country: None (occurrence: None)
  Receive Date: 20070524
  Receipt Date: 20070524
  Transmission Date: 20071010
  Serious: Yes (Disabling)
  Sender: FDA-Public Use
  Company Number: None

PATIENT
  Age: 82 Year
  Sex: Male

DRUGS (1)
  1. AMARYL [Suspect]
     Dosage: 4 MG QHS PO
     Route: 048
     Dates: start: 20070201, end: 20070203

REACTIONS (4)
  - DRUG DISPENSING ERROR [None]
  - HYPERHIDROSIS [None]
  - HYPOGLYCAEMIA [None]
  - LETHARGY [None]
